FAERS Safety Report 26136032 (Version 1)
Quarter: 2025Q4

REPORT INFORMATION
  Report Type: Spontaneous
  Country: US (occurrence: None)
  Receive Date: 20251209
  Receipt Date: 20251209
  Transmission Date: 20260117
  Serious: Yes (Hospitalization)
  Sender: FDA-CTU
  Company Number: None

PATIENT
  Age: 86 Year
  Sex: Male
  Weight: 84 kg

DRUGS (1)
  1. PEMBROLIZUMAB [Suspect]
     Active Substance: PEMBROLIZUMAB
     Indication: Prostate cancer
     Dosage: 200 MG  IV
     Route: 042
     Dates: start: 20240614, end: 20240712

REACTIONS (3)
  - Myalgia [None]
  - Myasthenia gravis [None]
  - Myositis [None]

NARRATIVE: CASE EVENT DATE: 20240724
